FAERS Safety Report 19713719 (Version 1)
Quarter: 2021Q3

REPORT INFORMATION
  Report Type: Spontaneous
  Country: US (occurrence: US)
  Receive Date: 20210817
  Receipt Date: 20210817
  Transmission Date: 20211014
  Serious: No
  Sender: FDA-Public Use
  Company Number: US-JNJFOC-20210815469

PATIENT
  Age: 65 Year
  Sex: Female
  Weight: 70.31 kg

DRUGS (7)
  1. BENADRYL [Suspect]
     Active Substance: DIPHENHYDRAMINE HYDROCHLORIDE
     Indication: VACCINATION COMPLICATION
  2. EPINEPHRINE. [Concomitant]
     Active Substance: EPINEPHRINE
     Indication: VACCINATION COMPLICATION
  3. BENADRYL [Suspect]
     Active Substance: DIPHENHYDRAMINE HYDROCHLORIDE
     Indication: LARYNGOSPASM
     Route: 065
     Dates: start: 20210405
  4. COVID?19 VACCINE [Concomitant]
     Indication: COVID-19 IMMUNISATION
     Dosage: LEFT UPPER ARM ; FIRST DOSE
     Route: 065
     Dates: start: 20210315
  5. EPINEPHRINE. [Concomitant]
     Active Substance: EPINEPHRINE
     Indication: LARYNGOSPASM
     Route: 065
  6. COVID?19 VACCINE [Concomitant]
     Route: 065
     Dates: start: 20210405
  7. TYLENOL [Suspect]
     Active Substance: ACETAMINOPHEN
     Indication: PREMEDICATION
     Route: 065
     Dates: start: 20210404

REACTIONS (2)
  - Product use in unapproved indication [Unknown]
  - Off label use [Unknown]

NARRATIVE: CASE EVENT DATE: 20210405
